FAERS Safety Report 7497153-8 (Version None)
Quarter: 2011Q2

REPORT INFORMATION
  Report Type: 
  Country: None (occurrence: None)
  Receive Date: 20110523
  Receipt Date: 20110513
  Transmission Date: 20111010
  Serious: Yes (Hospitalization)
  Sender: FDA-Public Use
  Company Number: BR-ASTRAZENECA-2011SE29246

PATIENT
  Age: 601 Month
  Sex: Female
  Weight: 64.4 kg

DRUGS (4)
  1. ANASTROZOLE [Suspect]
     Indication: BREAST CANCER STAGE IV
     Route: 048
     Dates: end: 20090801
  2. FULVESTRANT [Suspect]
     Indication: BREAST CANCER
     Route: 030
     Dates: start: 20090701, end: 20110127
  3. ZOLEDRONIC ACID [Concomitant]
     Indication: BREAST CANCER
     Route: 042
     Dates: start: 20110127, end: 20110127
  4. LETROZOL [Concomitant]
     Dates: start: 20000701

REACTIONS (3)
  - GLOSSITIS [None]
  - TONGUE NEOPLASM MALIGNANT STAGE UNSPECIFIED [None]
  - GLOSSODYNIA [None]
